FAERS Safety Report 6879027-6 (Version None)
Quarter: 2010Q3

REPORT INFORMATION
  Report Type: 
  Country: None (occurrence: None)
  Receive Date: 20100728
  Receipt Date: 20100712
  Transmission Date: 20110219
  Serious: Yes (Hospitalization)
  Sender: FDA-Public Use
  Company Number: GXBR2010US00860

PATIENT
  Sex: Female
  Weight: 97 kg

DRUGS (2)
  1. OXACILLIN FOR INJECTION, USP (NGX) [Suspect]
     Indication: INFECTION
     Dosage: 8 GRAM IN 240ML WATER
     Dates: start: 20100304
  2. VANCOMYCIN [Suspect]
     Indication: STAPHYLOCOCCAL INFECTION
     Dosage: 2 GM IN 335ML NORMAL SALINE OVER 2 HOURS DAILY
     Route: 042
     Dates: start: 20100304

REACTIONS (2)
  - DEHYDRATION [None]
  - PLEURAL EFFUSION [None]
